FAERS Safety Report 13219783 (Version 1)
Quarter: 2017Q1

REPORT INFORMATION
  Report Type: Spontaneous
  Country: US (occurrence: US)
  Receive Date: 20170210
  Receipt Date: 20170210
  Transmission Date: 20170428
  Serious: No
  Sender: FDA-Public Use
  Company Number: US-ASTRAZENECA-2017SE12259

PATIENT
  Age: 539 Month
  Sex: Female
  Weight: 54.4 kg

DRUGS (6)
  1. SEROQUEL [Suspect]
     Active Substance: QUETIAPINE FUMARATE
     Indication: BIPOLAR DISORDER
     Route: 048
     Dates: start: 2010, end: 201506
  2. SEROQUEL [Suspect]
     Active Substance: QUETIAPINE FUMARATE
     Indication: BIPOLAR DISORDER
     Dosage: QUETIAPINE
     Route: 048
     Dates: start: 2010, end: 201606
  3. SEROQUEL [Suspect]
     Active Substance: QUETIAPINE FUMARATE
     Indication: SCHIZOPHRENIA
     Dosage: QUETIAPINE
     Route: 048
     Dates: start: 2010, end: 201606
  4. SEROQUEL [Suspect]
     Active Substance: QUETIAPINE FUMARATE
     Indication: SCHIZOPHRENIA
     Dosage: SEROQUEL XR
     Route: 048
     Dates: start: 2010, end: 201606
  5. SEROQUEL [Suspect]
     Active Substance: QUETIAPINE FUMARATE
     Indication: SCHIZOPHRENIA
     Route: 048
     Dates: start: 2010, end: 201506
  6. SEROQUEL [Suspect]
     Active Substance: QUETIAPINE FUMARATE
     Indication: BIPOLAR DISORDER
     Dosage: SEROQUEL XR
     Route: 048
     Dates: start: 2010, end: 201606

REACTIONS (18)
  - Hyperhidrosis [Unknown]
  - Screaming [Unknown]
  - Illusion [Unknown]
  - Dysarthria [Unknown]
  - Constipation [Unknown]
  - Abasia [Unknown]
  - Hallucination [Unknown]
  - Salivary hypersecretion [Unknown]
  - Tooth erosion [Unknown]
  - Hyperphagia [Unknown]
  - Bowel movement irregularity [Unknown]
  - Off label use [Unknown]
  - Middle insomnia [Unknown]
  - Dry mouth [Unknown]
  - Haemorrhage [Unknown]
  - Musculoskeletal discomfort [Unknown]
  - Limb discomfort [Unknown]
  - Feeding disorder [Unknown]

NARRATIVE: CASE EVENT DATE: 201606
